FAERS Safety Report 9365381 (Version 2)
Quarter: 2013Q2

REPORT INFORMATION
  Report Type: Spontaneous
  Country: US (occurrence: US)
  Receive Date: 20130625
  Receipt Date: 20130628
  Transmission Date: 20140414
  Serious: No
  Sender: FDA-Public Use
  Company Number: US-009507513-1306USA008734

PATIENT
  Age: 29 Year
  Sex: 0
  Weight: 110.66 kg

DRUGS (1)
  1. IMPLANON [Suspect]
     Dosage: 1 DF, UNK
     Route: 059
     Dates: start: 20130122, end: 201306

REACTIONS (2)
  - Device breakage [Unknown]
  - No adverse event [Unknown]
